FAERS Safety Report 7170515-4 (Version None)
Quarter: 2010Q4

REPORT INFORMATION
  Report Type: 
  Country: None (occurrence: None)
  Receive Date: 20101217
  Receipt Date: 20101206
  Transmission Date: 20110411
  Serious: Yes (Other)
  Sender: FDA-Public Use
  Company Number: PHHY2010JP75988

PATIENT
  Sex: Male

DRUGS (6)
  1. AFINITOR [Suspect]
     Indication: METASTATIC RENAL CELL CARCINOMA
     Dosage: 10 MG, DAILY
     Route: 048
     Dates: start: 20100816, end: 20100824
  2. AFINITOR [Suspect]
     Dosage: 10 MG, QD
     Route: 048
     Dates: start: 20101003, end: 20101027
  3. OXINORM [Concomitant]
     Dosage: 2.5 MG, UNK
     Route: 048
     Dates: start: 20100802
  4. OXYCONTIN [Concomitant]
     Dosage: 5 MG, UNK
     Route: 048
     Dates: start: 20100802
  5. MOBIC [Concomitant]
     Dosage: 10 MG, UNK
     Route: 048
     Dates: start: 20100802
  6. TAKEPRON [Concomitant]
     Dosage: 15 MG, UNK
     Route: 048
     Dates: start: 20100802

REACTIONS (9)
  - ANAEMIA [None]
  - C-REACTIVE PROTEIN INCREASED [None]
  - CHEST DISCOMFORT [None]
  - HEPATIC FUNCTION ABNORMAL [None]
  - INTERSTITIAL LUNG DISEASE [None]
  - MALIGNANT NEOPLASM PROGRESSION [None]
  - PNEUMOCYSTIS JIROVECI PNEUMONIA [None]
  - PYREXIA [None]
  - RESPIRATORY DISTRESS [None]
